FAERS Safety Report 4396666-5 (Version None)
Quarter: 2004Q3

REPORT INFORMATION
  Report Type: 
  Country: None (occurrence: None)
  Receive Date: 20040708
  Receipt Date: 20040701
  Transmission Date: 20050211
  Serious: Yes (Death)
  Sender: FDA-Public Use
  Company Number: STA-AE-04-MTX-282

PATIENT
  Age: 46 Year
  Sex: Male

DRUGS (7)
  1. METHOTREXATE [Suspect]
     Indication: RHEUMATOID ARTHRITIS
     Dosage: 10 MG 1X PER 1 WK, ORAL
     Route: 048
     Dates: start: 20040503, end: 20040503
  2. LEVAXIN (LEVOTHYROXINE SODIUM) [Concomitant]
  3. PREDNISOLONE [Concomitant]
  4. APOCILLIN (PHENOXYMETHYLPENICILLIN POTASSIUM) [Concomitant]
  5. OXIS TURBUHALER (FORMOTEROL FUMARATE) [Concomitant]
  6. PULMICORT [Concomitant]
  7. ARTHROTEC [Concomitant]

REACTIONS (4)
  - ALVEOLITIS FIBROSING [None]
  - CARDIAC ARREST [None]
  - CONDITION AGGRAVATED [None]
  - RHEUMATOID ARTHRITIS [None]
